FAERS Safety Report 6026575-7 (Version None)
Quarter: 2008Q4

REPORT INFORMATION
  Report Type: 
  Country: None (occurrence: None)
  Receive Date: 20081231
  Receipt Date: 20081216
  Transmission Date: 20090506
  Serious: Yes (Other)
  Sender: FDA-Public Use
  Company Number: KV200801088

PATIENT
  Age: 51 Year
  Sex: Female

DRUGS (10)
  1. MORPHINE SULFATE [Suspect]
     Indication: PAIN
     Dosage: 1-2 TABS Q6-Q8HRS, ORAL
     Route: 048
     Dates: start: 20080601, end: 20080601
  2. KLONOPIN [Concomitant]
  3. MULTIVITAMIN /00831701/ (VITAMINS NOS) [Concomitant]
  4. LEXAPRO [Concomitant]
  5. ATENOLOL [Concomitant]
  6. CYCLOBENZAPRINE [Concomitant]
  7. HYDROXYZINE [Concomitant]
  8. METOCLOPRAMIDE [Concomitant]
  9. EST [Concomitant]
  10. HYDROCODONE (HYDROCODONE) [Concomitant]

REACTIONS (4)
  - HALLUCINATION [None]
  - NIGHTMARE [None]
  - PRODUCT QUALITY ISSUE [None]
  - SUICIDAL IDEATION [None]
